FAERS Safety Report 23442538 (Version 1)
Quarter: 2024Q1

REPORT INFORMATION
  Report Type: Spontaneous
  Country: US (occurrence: US)
  Receive Date: 20240125
  Receipt Date: 20240125
  Transmission Date: 20240410
  Serious: Yes (Other)
  Sender: FDA-Public Use
  Company Number: US-GLAND PHARMA LIMITED-2024US000196

PATIENT
  Age: 76 Year
  Sex: Female

DRUGS (9)
  1. MOXIFLOXACIN [Suspect]
     Active Substance: MOXIFLOXACIN
     Indication: Eye operation
     Dosage: 8 TIMES DAILY
     Route: 065
  2. MOXIFLOXACIN [Suspect]
     Active Substance: MOXIFLOXACIN
     Indication: Ulcerative keratitis
     Dosage: UNK
     Route: 061
  3. TOBRAMYCIN [Suspect]
     Active Substance: TOBRAMYCIN
     Indication: Ulcerative keratitis
     Dosage: UNK
     Route: 065
  4. VANCOMYCIN HYDROCHLORIDE [Suspect]
     Active Substance: VANCOMYCIN HYDROCHLORIDE
     Indication: Ulcerative keratitis
     Dosage: UNK
     Route: 065
  5. PREDNISOLONE [Suspect]
     Active Substance: PREDNISOLONE
     Indication: Eye operation
     Dosage: UNK, QID
     Route: 065
  6. PROPYLENE GLYCOL [Suspect]
     Active Substance: PROPYLENE GLYCOL
     Indication: Eye operation
     Dosage: UNK, PRN
     Route: 065
  7. VALACYCLOVIR [Suspect]
     Active Substance: VALACYCLOVIR HYDROCHLORIDE
     Indication: Ulcerative keratitis
     Dosage: UNK
     Route: 048
  8. ERYTHROMYCIN [Suspect]
     Active Substance: ERYTHROMYCIN
     Indication: Ulcerative keratitis
     Dosage: UNK
     Route: 065
  9. AMPHOTERICIN B [Suspect]
     Active Substance: AMPHOTERICIN B
     Indication: Ulcerative keratitis
     Dosage: UNK
     Route: 065

REACTIONS (10)
  - Ulcerative keratitis [Unknown]
  - Corneal epithelium defect [Unknown]
  - Hypoaesthesia eye [Unknown]
  - Corneal infiltrates [Unknown]
  - Visual impairment [Unknown]
  - Condition aggravated [Unknown]
  - Eye pain [Unknown]
  - Lacrimal gland enlargement [Unknown]
  - Periorbital inflammation [Unknown]
  - Drug ineffective for unapproved indication [Unknown]
